FAERS Safety Report 24545997 (Version 2)
Quarter: 2024Q4

REPORT INFORMATION
  Report Type: Report from Study
  Country: CA (occurrence: CA)
  Receive Date: 20241024
  Receipt Date: 20241130
  Transmission Date: 20250114
  Serious: Yes (Other)
  Sender: ABBVIE
  Company Number: CA-ABBVIE-5974633

PATIENT
  Age: 48 Year
  Sex: Male

DRUGS (1)
  1. RINVOQ [Suspect]
     Active Substance: UPADACITINIB
     Indication: Crohn^s disease
     Dosage: LAST ADMIN DATE: 2024
     Route: 048
     Dates: start: 20240705

REACTIONS (1)
  - Intestinal operation [Unknown]

NARRATIVE: CASE EVENT DATE: 20240101
